FAERS Safety Report 6682016-8 (Version None)
Quarter: 2010Q2

REPORT INFORMATION
  Report Type: 
  Country: None (occurrence: None)
  Receive Date: 20100414
  Receipt Date: 20100414
  Transmission Date: 20101027
  Serious: Yes (Other)
  Sender: FDA-Public Use
  Company Number: None

PATIENT
  Age: 43 Year
  Sex: Female
  Weight: 68.9467 kg

DRUGS (1)
  1. ALENDRONATE SODIUM [Suspect]
     Indication: BONE DISORDER
     Dosage: BY MOUTH ONCE A WEEK
     Route: 048
     Dates: start: 20100315, end: 20100405

REACTIONS (3)
  - ASTHMA [None]
  - INFLUENZA LIKE ILLNESS [None]
  - SPEECH DISORDER [None]
